FAERS Safety Report 14968446 (Version 2)
Quarter: 2018Q4

REPORT INFORMATION
  Report Type: Spontaneous
  Country: CZ (occurrence: CZ)
  Receive Date: 20180604
  Receipt Date: 20181008
  Transmission Date: 20190204
  Serious: Yes (Hospitalization, Other)
  Sender: FDA-Public Use
  Company Number: CZ-CELGENEUS-CZE-20180507265

PATIENT
  Age: 69 Year
  Sex: Male

DRUGS (5)
  1. GEMCITABINE [Suspect]
     Active Substance: GEMCITABINE\GEMCITABINE HYDROCHLORIDE
     Indication: ADENOCARCINOMA PANCREAS
     Route: 042
     Dates: start: 201402
  2. ABRAXANE [Suspect]
     Active Substance: PACLITAXEL
     Route: 041
     Dates: end: 201711
  3. GEMCITABINE [Suspect]
     Active Substance: GEMCITABINE\GEMCITABINE HYDROCHLORIDE
     Dosage: PAST
     Route: 065
     Dates: start: 201306, end: 201402
  4. ABRAXANE [Suspect]
     Active Substance: PACLITAXEL
     Indication: ADENOCARCINOMA PANCREAS
     Route: 041
     Dates: start: 201604
  5. GEMCITABINE [Suspect]
     Active Substance: GEMCITABINE\GEMCITABINE HYDROCHLORIDE
     Route: 042
     Dates: start: 201604

REACTIONS (14)
  - Cardiac failure [Unknown]
  - Malignant neoplasm progression [Unknown]
  - Haematotoxicity [Recovered/Resolved]
  - Bone marrow failure [Recovered/Resolved]
  - Bone marrow toxicity [Unknown]
  - Alopecia [Unknown]
  - Weight increased [Unknown]
  - Pancreatic carcinoma metastatic [Unknown]
  - Dehydration [Unknown]
  - Renal failure [Unknown]
  - Pneumonia [Unknown]
  - Neutropenia [Unknown]
  - Neck pain [Unknown]
  - Peripheral venous disease [Unknown]

NARRATIVE: CASE EVENT DATE: 2016
